FAERS Safety Report 9349686 (Version 2)
Quarter: 2013Q2

REPORT INFORMATION
  Report Type: Spontaneous
  Country: JP (occurrence: None)
  Receive Date: 20130611
  Receipt Date: 20130620
  Transmission Date: 20140414
  Serious: Yes (Hospitalization, Other)
  Sender: FDA-Public Use
  Company Number: JP-20130055

PATIENT
  Age: 70 Year
  Sex: Male

DRUGS (5)
  1. LIPIODOL ULTRA FLUIDE [Suspect]
     Indication: THERAPEUTIC EMBOLISATION
     Route: 013
     Dates: start: 20091222, end: 20091222
  2. NBCA [Suspect]
     Indication: THERAPEUTIC EMBOLISATION
     Route: 013
     Dates: start: 20091222, end: 20091222
  3. RED CELL CONCENTRATES MANNITOL ADENINE PHOSPHATE [Concomitant]
  4. ALBUMINAR (ALBUMIN HUMAN) (ALBUMIN HUMAN) [Concomitant]
  5. BUSCOPAN (HYOSCINE BUTYLBROMIDE) (HYOSCINE BUTYLBROMIDE) [Concomitant]

REACTIONS (3)
  - Postoperative ileus [None]
  - Off label use [None]
  - Haematoma [None]
